FAERS Safety Report 6477410-4 (Version None)
Quarter: 2009Q4

REPORT INFORMATION
  Report Type: 
  Country: None (occurrence: None)
  Receive Date: 20091207
  Receipt Date: 20091028
  Transmission Date: 20100525
  Serious: Yes (Life-Threatening)
  Sender: FDA-Public Use
  Company Number: JP-SANOFI-AVENTIS-200912571JP

PATIENT
  Age: 52 Year
  Sex: Male
  Weight: 60.8 kg

DRUGS (12)
  1. DOCETAXEL [Suspect]
     Indication: NON-SMALL CELL LUNG CANCER
     Route: 041
     Dates: start: 20090820, end: 20090820
  2. DOCETAXEL [Suspect]
     Route: 041
     Dates: start: 20090910, end: 20090910
  3. RANITIDINE HYDROCHLORIDE [Concomitant]
     Route: 048
     Dates: start: 20090730
  4. LANIRAPID [Concomitant]
     Route: 048
     Dates: start: 20090730
  5. MUCOSOLVAN [Concomitant]
     Route: 048
     Dates: start: 20090730
  6. GRIMAC [Concomitant]
     Route: 048
     Dates: start: 20090730
  7. ELIETEN [Concomitant]
     Route: 048
     Dates: start: 20090730
  8. CARBOPLATIN [Concomitant]
     Dates: start: 20090820, end: 20090820
  9. DEXAMETHASONE TAB [Concomitant]
     Dates: start: 20090820, end: 20090820
  10. DEXAMETHASONE TAB [Concomitant]
     Dates: start: 20090910, end: 20090910
  11. GRANISETRON HCL [Concomitant]
     Dates: start: 20090820, end: 20090820
  12. GRANISETRON HCL [Concomitant]
     Dates: start: 20090910, end: 20090910

REACTIONS (2)
  - ANAPHYLACTIC SHOCK [None]
  - CARDIO-RESPIRATORY ARREST [None]
